FAERS Safety Report 8902004 (Version 2)
Quarter: 2013Q1

REPORT INFORMATION
  Report Type: Spontaneous
  Country: US (occurrence: US)
  Receive Date: 20121112
  Receipt Date: 20130131
  Transmission Date: 20140127
  Serious: Yes (Hospitalization)
  Sender: FDA-Public Use
  Company Number: US-ELI_LILLY_AND_COMPANY-US201211000209

PATIENT
  Sex: Female
  Weight: 66.21 kg

DRUGS (3)
  1. HUMALOG LISPRO [Suspect]
     Indication: TYPE 1 DIABETES MELLITUS
     Dosage: UNK, PRN
     Route: 058
     Dates: end: 201111
  2. HUMULIN REGULAR [Suspect]
     Indication: TYPE 1 DIABETES MELLITUS
     Dosage: 15 U, TID
  3. LANTUS [Concomitant]
     Dosage: 22 U, BID

REACTIONS (6)
  - Pelvic prolapse [Recovered/Resolved]
  - Coeliac disease [Not Recovered/Not Resolved]
  - Blood glucose increased [Unknown]
  - Medication error [Recovered/Resolved]
  - Drug effect delayed [Unknown]
  - Weight decreased [Unknown]
